FAERS Safety Report 10361124 (Version 2)
Quarter: 2014Q3

REPORT INFORMATION
  Report Type: Spontaneous
  Country: US (occurrence: US)
  Receive Date: 20140804
  Receipt Date: 20140804
  Transmission Date: 20150326
  Serious: Yes (Hospitalization)
  Sender: FDA-Public Use
  Company Number: US-009507513-2011SP040947

PATIENT
  Sex: Female
  Weight: 75.75 kg

DRUGS (5)
  1. NUVARING [Suspect]
     Active Substance: ETHINYL ESTRADIOL\ETONOGESTREL
     Indication: MENSTRUATION IRREGULAR
     Dosage: UNK
     Route: 067
     Dates: start: 200612, end: 200909
  2. ALBUTEROL. [Concomitant]
     Active Substance: ALBUTEROL
     Indication: DYSPNOEA
     Dates: start: 2005
  3. COMPAZINE [Suspect]
     Active Substance: PROCHLORPERAZINE MALEATE
     Indication: HEADACHE
  4. NUVARING [Suspect]
     Active Substance: ETHINYL ESTRADIOL\ETONOGESTREL
     Dosage: UNK
     Route: 067
     Dates: end: 20091007
  5. IMITREX [Suspect]
     Active Substance: SUMATRIPTAN\SUMATRIPTAN SUCCINATE
     Indication: MIGRAINE

REACTIONS (24)
  - Overdose [Unknown]
  - Bipolar disorder [Not Recovered/Not Resolved]
  - Nausea [Unknown]
  - Pelvic pain [Unknown]
  - Suicidal behaviour [Unknown]
  - Restless legs syndrome [Unknown]
  - Headache [Not Recovered/Not Resolved]
  - Alcohol abuse [Not Recovered/Not Resolved]
  - Ovarian cyst ruptured [Unknown]
  - Musculoskeletal stiffness [Unknown]
  - Smear vaginal abnormal [Unknown]
  - Dysmenorrhoea [Unknown]
  - Menometrorrhagia [Unknown]
  - Dysfunctional uterine bleeding [Unknown]
  - Dyspareunia [Unknown]
  - Insomnia [Unknown]
  - Muscle spasms [Unknown]
  - Vomiting [Unknown]
  - Migraine [Unknown]
  - Adverse drug reaction [Unknown]
  - Nervousness [Unknown]
  - Off label use [Unknown]
  - Thrombophlebitis superficial [Not Recovered/Not Resolved]
  - Vulvovaginitis trichomonal [Unknown]

NARRATIVE: CASE EVENT DATE: 200901
